FAERS Safety Report 9519119 (Version 1)
Quarter: 2013Q1

REPORT INFORMATION
  Report Type: Spontaneous
  Country: US (occurrence: None)
  Receive Date: 20130305
  Receipt Date: 20130305
  Transmission Date: 20140127
  Serious: No
  Sender: FDA-Public Use
  Company Number: 163-21880-12010404

PATIENT
  Age: 61 Year
  Sex: Female
  Weight: 103.15 kg

DRUGS (1)
  1. REVLIMID [Suspect]
     Indication: MYELODYSPLASTIC SYNDROME
     Dosage: 25MG, DAILY X 21 DAYS, PO
     Route: 048
     Dates: start: 20111209

REACTIONS (3)
  - Anaemia [None]
  - Urticaria [None]
  - Pruritus [None]
